FAERS Safety Report 9268770 (Version 1)
Quarter: 2013Q2

REPORT INFORMATION
  Report Type: Spontaneous
  Country: US (occurrence: US)
  Receive Date: 20130502
  Receipt Date: 20130502
  Transmission Date: 20140414
  Serious: Yes (Hospitalization, Other)
  Sender: FDA-Public Use
  Company Number: US-BAXTER-2013BAX015609

PATIENT
  Age: 28 Year
  Sex: Male

DRUGS (1)
  1. DIANEAL LOW CALCIUM [Suspect]
     Indication: PERITONEAL DIALYSIS
     Route: 033
     Dates: start: 20130107

REACTIONS (3)
  - Hypoglycaemia [Recovering/Resolving]
  - Mental status changes [Recovering/Resolving]
  - Diabetes mellitus inadequate control [Recovering/Resolving]
